FAERS Safety Report 19265377 (Version 2)
Quarter: 2023Q1

REPORT INFORMATION
  Report Type: Spontaneous
  Country: CA (occurrence: None)
  Receive Date: 20210517
  Receipt Date: 20230206
  Transmission Date: 20230417
  Serious: Yes (Life-Threatening, Hospitalization)
  Sender: FDA-Public Use
  Company Number: 2021A422285

PATIENT
  Age: 64 Year
  Sex: Female

DRUGS (7)
  1. DAPAGLIFLOZIN [Suspect]
     Active Substance: DAPAGLIFLOZIN
     Indication: Diabetes mellitus
     Route: 048
     Dates: start: 20180808, end: 20201218
  2. ATORVASTATIN [Concomitant]
     Active Substance: ATORVASTATIN
  3. BETAHISTINE [Concomitant]
     Active Substance: BETAHISTINE
  4. ENALAPRIL [Concomitant]
     Active Substance: ENALAPRIL
  5. LEVEMIR [Concomitant]
     Active Substance: INSULIN DETEMIR
     Route: 058
  6. NOVORAPID [Concomitant]
     Active Substance: INSULIN ASPART
     Route: 058
  7. PANTOPRAZOLE [Concomitant]
     Active Substance: PANTOPRAZOLE

REACTIONS (9)
  - Arrhythmia [Unknown]
  - Haemostasis [Unknown]
  - Hepatic hypoperfusion [Unknown]
  - Hypoperfusion [Unknown]
  - Hypotension [Unknown]
  - Lactic acidosis [Unknown]
  - Renal ischaemia [Unknown]
  - Shock [Unknown]
  - Euglycaemic diabetic ketoacidosis [Recovering/Resolving]

NARRATIVE: CASE EVENT DATE: 20201218
